FAERS Safety Report 10202737 (Version 3)
Quarter: 2014Q2

REPORT INFORMATION
  Report Type: Spontaneous
  Country: JP (occurrence: JP)
  Receive Date: 20140528
  Receipt Date: 20140611
  Transmission Date: 20141212
  Serious: Yes (Other)
  Sender: FDA-Public Use
  Company Number: JP-BAYER-2014-059150

PATIENT
  Age: 71 Year
  Sex: Male
  Weight: 58 kg

DRUGS (10)
  1. XARELTO [Suspect]
     Indication: ATRIAL FIBRILLATION
     Dosage: 10 MG, QD
     Route: 048
     Dates: start: 20140304, end: 20140315
  2. XARELTO [Suspect]
     Indication: CEREBROVASCULAR ACCIDENT PROPHYLAXIS
  3. FUROSEMIDE [Suspect]
     Dosage: 20 MG, QD
     Route: 048
     Dates: start: 20081101
  4. ARTIST [Suspect]
     Dosage: 2.500 MG, QD
     Route: 048
     Dates: start: 20081101
  5. ZYLORIC [Suspect]
     Dosage: 100 MG, QD
     Route: 048
     Dates: start: 20081101
  6. FAMOTIDINE [Suspect]
     Dosage: 20 MG, QD
     Route: 048
     Dates: start: 20081101
  7. BEPRICOR [Concomitant]
     Route: 048
  8. BAYASPIRIN [Suspect]
     Dosage: 100 NG, QD
     Route: 048
     Dates: start: 20081101
  9. CIBENOL [Suspect]
     Dosage: 100 MG, QD
     Route: 048
     Dates: start: 20081101, end: 20140305
  10. CRESTOR [Suspect]
     Dosage: 2.5 MG, QD
     Route: 048
     Dates: start: 20081101

REACTIONS (3)
  - Thrombocytopenia [Recovered/Resolved]
  - Hepatic function abnormal [Recovered/Resolved]
  - Hyperamylasaemia [Recovering/Resolving]
